FAERS Safety Report 7844948-4 (Version None)
Quarter: 2011Q4

REPORT INFORMATION
  Report Type: 
  Country: None (occurrence: None)
  Receive Date: 20111025
  Receipt Date: 20111020
  Transmission Date: 20120403
  Serious: Yes (Hospitalization)
  Sender: FDA-Public Use
  Company Number: IE-JNJFOC-20110905351

PATIENT
  Sex: Female

DRUGS (5)
  1. NEBIVOLOL HCL [Concomitant]
  2. SIMPONI [Suspect]
     Indication: RHEUMATOID ARTHRITIS
     Route: 058
     Dates: start: 20110812
  3. PANTOPRAZOLE [Concomitant]
  4. ACETAMINOPHEN W/ CODEINE [Concomitant]
  5. RAMIPRIL [Concomitant]

REACTIONS (3)
  - INJECTION SITE REACTION [None]
  - HYPERTENSION [None]
  - HEADACHE [None]
